FAERS Safety Report 10446648 (Version 1)
Quarter: 2014Q3

REPORT INFORMATION
  Report Type: Spontaneous
  Country: US (occurrence: None)
  Receive Date: 20140910
  Receipt Date: 20140910
  Transmission Date: 20150326
  Serious: No
  Sender: FDA-Public Use
  Company Number: None

PATIENT
  Age: 65 Year
  Sex: Female
  Weight: 73.48 kg

DRUGS (1)
  1. ATELVIA [Suspect]
     Active Substance: RISEDRONATE SODIUM
     Indication: OSTEOPOROSIS
     Dosage: 1 PILL, ONCE A WEEK, TAKEN BY MOUTH
     Route: 048
     Dates: start: 20140821, end: 20140904

REACTIONS (4)
  - Arthralgia [None]
  - Abdominal pain [None]
  - Hot flush [None]
  - Insomnia [None]

NARRATIVE: CASE EVENT DATE: 20140906
